FAERS Safety Report 26147218 (Version 1)
Quarter: 2025Q4

REPORT INFORMATION
  Report Type: Spontaneous
  Country: GB (occurrence: GB)
  Receive Date: 20251211
  Receipt Date: 20251211
  Transmission Date: 20260118
  Serious: Yes (Life-Threatening, Hospitalization, Disabling, Other)
  Sender: ELI LILLY AND COMPANY
  Company Number: None

PATIENT
  Age: 33 Year
  Sex: Male
  Weight: 83 kg

DRUGS (5)
  1. MOUNJARO [Interacting]
     Active Substance: TIRZEPATIDE
     Indication: Weight control
     Dosage: UNK UNK, WEEKLY (1/W)
     Route: 065
     Dates: start: 20250321
  2. MOUNJARO [Interacting]
     Active Substance: TIRZEPATIDE
     Indication: Weight control
     Dosage: UNK UNK, WEEKLY (1/W)
     Route: 065
     Dates: start: 20250321
  3. MOUNJARO [Interacting]
     Active Substance: TIRZEPATIDE
     Indication: Alopecia
     Dosage: 12.5 MG, WEEKLY (1/W)
     Route: 065
     Dates: start: 20251122
  4. MOUNJARO [Interacting]
     Active Substance: TIRZEPATIDE
     Indication: Alopecia
     Dosage: 12.5 MG, WEEKLY (1/W)
     Route: 065
     Dates: start: 20251122
  5. FINASTERIDE [Interacting]
     Active Substance: FINASTERIDE
     Indication: Alopecia
     Dosage: 1 MG, DAILY
     Route: 065
     Dates: start: 20250309

REACTIONS (2)
  - Palpitations [Not Recovered/Not Resolved]
  - Drug interaction [Unknown]

NARRATIVE: CASE EVENT DATE: 20251126
